FAERS Safety Report 7904640-4 (Version None)
Quarter: 2011Q4

REPORT INFORMATION
  Report Type: 
  Country: None (occurrence: None)
  Receive Date: 20111109
  Receipt Date: 20111028
  Transmission Date: 20120403
  Serious: Yes (Hospitalization, Congenital Anomaly)
  Sender: FDA-Public Use
  Company Number: US-GLAXOSMITHKLINE-A0950305A

PATIENT
  Sex: Female
  Weight: 2.7 kg

DRUGS (1)
  1. PAXIL [Suspect]
     Indication: PRODUCT USED FOR UNKNOWN INDICATION
     Dosage: 40MG PER DAY
     Route: 064

REACTIONS (11)
  - TALIPES [None]
  - PARAPLEGIA [None]
  - NEUROGENIC BLADDER [None]
  - ARNOLD-CHIARI MALFORMATION [None]
  - SCOLIOSIS [None]
  - SPINA BIFIDA [None]
  - CARDIAC MURMUR [None]
  - FOETAL EXPOSURE DURING PREGNANCY [None]
  - RESPIRATORY DISTRESS [None]
  - NEUROGENIC BOWEL [None]
  - DEAFNESS [None]
